FAERS Safety Report 9007126 (Version 1)
Quarter: 2013Q1

REPORT INFORMATION
  Report Type: Spontaneous
  Country: DE (occurrence: DE)
  Receive Date: 20130110
  Receipt Date: 20130110
  Transmission Date: 20140127
  Serious: Yes (Hospitalization)
  Sender: FDA-Public Use
  Company Number: PHHY2013DE001976

PATIENT
  Age: 64 Year
  Sex: Male
  Weight: 82 kg

DRUGS (7)
  1. BASILIXIMAB [Suspect]
     Indication: RENAL TRANSPLANT
     Route: 042
     Dates: start: 20120822
  2. BASILIXIMAB [Suspect]
     Route: 042
     Dates: start: 20120826
  3. TACROLIMUS [Suspect]
     Indication: RENAL TRANSPLANT
     Dosage: 6MG ONCE A DAY (1 IN 1 D)
     Route: 048
     Dates: start: 20120822
  4. PREDNISOLONE [Suspect]
     Indication: RENAL TRANSPLANT
     Dosage: 7.5MG ONCE A DAY (1 IN 1 D)
     Route: 048
     Dates: start: 20120822
  5. PREDNISOLONE [Suspect]
     Dates: start: 20120914
  6. CELLCEPT [Suspect]
     Indication: RENAL TRANSPLANT
     Dosage: 1000MG TWICE DAILY (2 IN 1 D)
     Route: 048
     Dates: start: 20120822
  7. CELLCEPT [Suspect]
     Dosage: 01 G PER DAY (1 IN 1 D)
     Route: 048
     Dates: start: 20120912, end: 20121015

REACTIONS (4)
  - Pancytopenia [Recovering/Resolving]
  - Enterococcal sepsis [Recovering/Resolving]
  - Neurogenic bladder [Recovering/Resolving]
  - Diarrhoea [Unknown]
